FAERS Safety Report 22380774 (Version 1)
Quarter: 2023Q2

REPORT INFORMATION
  Report Type: Spontaneous
  Country: CA (occurrence: CA)
  Receive Date: 20230530
  Receipt Date: 20230530
  Transmission Date: 20230721
  Serious: Yes (Hospitalization, Other)
  Sender: FDA-Public Use
  Company Number: CA-STRIDES ARCOLAB LIMITED-2023SP007889

PATIENT

DRUGS (6)
  1. ATENOLOL [Suspect]
     Active Substance: ATENOLOL
     Indication: Product used for unknown indication
     Dosage: UNK ( PATIENT MOTHER RECEIVED12.5 MILLIGRAM, BID)
     Route: 064
  2. ATENOLOL [Suspect]
     Active Substance: ATENOLOL
     Dosage: UNK, (PATIENT MOTHER RECEIVED25 MILLIGRAM PER DAY IN THE MORNING)
     Route: 064
  3. ATENOLOL [Suspect]
     Active Substance: ATENOLOL
     Dosage: UNK, 12.5 MILLIGRAM PER DAY IN THE EVENING
     Route: 064
  4. ATENOLOL [Suspect]
     Active Substance: ATENOLOL
     Dosage: UNK (THE PATIENT MOTHER RECEIVED 25 MILLIGRAM TWICE A DAY)(INCREASED)
     Route: 064
  5. ATENOLOL [Suspect]
     Active Substance: ATENOLOL
     Dosage: UNK (THE PATIENT MOTHER RECEIVED 12.5 MILLIGRAM TWICE A DAY) (DECREASED DOSE)
     Route: 064
  6. NIFEDIPINE [Suspect]
     Active Substance: NIFEDIPINE
     Indication: Product used for unknown indication
     Dosage: UNK (THE PATIENT MOTHER RECEIVED 30 MILLIGRAM PER DAY)
     Route: 064

REACTIONS (2)
  - Low birth weight baby [Unknown]
  - Foetal exposure during pregnancy [Unknown]
